FAERS Safety Report 7208831-X (Version None)
Quarter: 2011Q1

REPORT INFORMATION
  Report Type: 
  Country: None (occurrence: None)
  Receive Date: 20110104
  Receipt Date: 20101221
  Transmission Date: 20110831
  Serious: Yes (Other)
  Sender: FDA-Public Use
  Company Number: US-RB-017965-11

PATIENT
  Sex: Female

DRUGS (1)
  1. MUCINEX [Suspect]

REACTIONS (1)
  - ABNORMAL SENSATION IN EYE [None]
